FAERS Safety Report 21157153 (Version 1)
Quarter: 2022Q3

REPORT INFORMATION
  Report Type: Spontaneous
  Country: US (occurrence: US)
  Receive Date: 20220801
  Receipt Date: 20220801
  Transmission Date: 20221027
  Serious: Yes (Other)
  Sender: FDA-Public Use
  Company Number: US-BRISTOL-MYERS SQUIBB COMPANY-2022-078676

PATIENT
  Age: 76 Year
  Sex: Male
  Weight: 93.57 kg

DRUGS (1)
  1. VIDAZA [Suspect]
     Active Substance: AZACITIDINE
     Indication: Myelodysplastic syndrome
     Dosage: FREQ : FOUR SHOTS EVERY DAY FOR SEVEN WORKING DAYS
     Route: 065
     Dates: start: 2022

REACTIONS (2)
  - Dry age-related macular degeneration [Unknown]
  - Condition aggravated [Unknown]

NARRATIVE: CASE EVENT DATE: 20220101
